FAERS Safety Report 10222957 (Version 1)
Quarter: 2014Q2

REPORT INFORMATION
  Report Type: Report from Study
  Country: MX (occurrence: MX)
  Receive Date: 20140607
  Receipt Date: 20140607
  Transmission Date: 20141212
  Serious: Yes (Death)
  Sender: FDA-Public Use
  Company Number: PHHY2014MX066139

PATIENT
  Age: 2 Month
  Sex: Female

DRUGS (1)
  1. OMNITROPE [Suspect]
     Indication: GROWTH RETARDATION
     Dosage: 0.1 MG, UNK
     Dates: start: 20110624, end: 20110903

REACTIONS (1)
  - Death [Fatal]
